FAERS Safety Report 15027683 (Version 1)
Quarter: 2018Q2

REPORT INFORMATION
  Report Type: Spontaneous
  Country: US (occurrence: US)
  Receive Date: 20180619
  Receipt Date: 20180619
  Transmission Date: 20180711
  Serious: No
  Sender: FDA-Public Use
  Company Number: US-PFIZER INC-2013338205

PATIENT
  Sex: Female

DRUGS (2)
  1. MEDROXYPROGESTERONE ACETATE. [Suspect]
     Active Substance: MEDROXYPROGESTERONE ACETATE
     Indication: MENOPAUSAL SYMPTOMS
     Dosage: UNK
     Dates: start: 2013
  2. MEDROXYPROGESTERONE ACETATE. [Suspect]
     Active Substance: MEDROXYPROGESTERONE ACETATE
     Dosage: UNK

REACTIONS (8)
  - Cortisol increased [Unknown]
  - Therapeutic response unexpected [Unknown]
  - Fatigue [Unknown]
  - Vomiting [Unknown]
  - Pre-existing condition improved [Unknown]
  - Energy increased [Unknown]
  - Confusional state [Unknown]
  - Thirst [Unknown]
